FAERS Safety Report 18568913 (Version 1)
Quarter: 2020Q4

REPORT INFORMATION
  Report Type: Spontaneous
  Country: US (occurrence: US)
  Receive Date: 20201202
  Receipt Date: 20201202
  Transmission Date: 20210114
  Serious: Yes (Life-Threatening, Hospitalization)
  Sender: FDA-Public Use
  Company Number: US-EMCURE PHARMACEUTICALS LTD-2020-EPL-001994

PATIENT
  Age: 15 Year
  Sex: Female

DRUGS (13)
  1. ETHOSUXIMIDE. [Suspect]
     Active Substance: ETHOSUXIMIDE
     Indication: SEIZURE
     Dosage: 10 MILLIGRAM PER KILOGRAM, BID,DAILY
  2. ETHOSUXIMIDE. [Suspect]
     Active Substance: ETHOSUXIMIDE
     Dosage: 38 MILLIGRAM PER KILOGRAM,BID,DAILY
  3. LEVETIRACETAM. [Concomitant]
     Active Substance: LEVETIRACETAM
     Indication: SEIZURE
  4. FLUTICASONE. [Concomitant]
     Active Substance: FLUTICASONE
  5. GENTAMICIN. [Concomitant]
     Active Substance: GENTAMICIN
  6. PHENOBARBITAL. [Concomitant]
     Active Substance: PHENOBARBITAL
     Indication: SEIZURE
  7. ETHOSUXIMIDE. [Suspect]
     Active Substance: ETHOSUXIMIDE
     Dosage: 30 MILLIGRAM PER KILOGRAM,BID,DAILY
  8. MIDAZOLAM. [Concomitant]
     Active Substance: MIDAZOLAM
     Indication: SEIZURE
  9. FOSPHENYTOIN [Concomitant]
     Active Substance: FOSPHENYTOIN
     Indication: SEIZURE
  10. RANITIDINE. [Concomitant]
     Active Substance: RANITIDINE
  11. ETHOSUXIMIDE. [Suspect]
     Active Substance: ETHOSUXIMIDE
     Dosage: WEAN OFF AND LAST DOSE
  12. VALPROIC ACID. [Concomitant]
     Active Substance: VALPROIC ACID
     Indication: SEIZURE
  13. LANSOPRAZOLE. [Concomitant]
     Active Substance: LANSOPRAZOLE

REACTIONS (2)
  - Macroglossia [Recovered/Resolved]
  - Oropharyngeal oedema [Recovering/Resolving]
